FAERS Safety Report 17827629 (Version 1)
Quarter: 2020Q2

REPORT INFORMATION
  Report Type: Other
  Country: CA (occurrence: CA)
  Receive Date: 20200527
  Receipt Date: 20200527
  Transmission Date: 20200714
  Serious: Yes (Other)
  Sender: FDA-Public Use
  Company Number: CA-APOTEX-2020AP011216

PATIENT
  Age: 66 Year
  Sex: Male

DRUGS (1)
  1. AMOXICILLIN/ CLAVULANIC ACID [Suspect]
     Active Substance: AMOXICILLIN\CLAVULANIC ACID
     Indication: PRODUCT USED FOR UNKNOWN INDICATION
     Dosage: UNK
     Route: 048

REACTIONS (5)
  - Eye swelling [Unknown]
  - Erythema [Unknown]
  - Lip swelling [Unknown]
  - Rash [Unknown]
  - Pruritus [Unknown]
